FAERS Safety Report 8876497 (Version 5)
Quarter: 2013Q3

REPORT INFORMATION
  Report Type: Report from Study
  Country: US (occurrence: US)
  Receive Date: 20121030
  Receipt Date: 20130823
  Transmission Date: 20140515
  Serious: No
  Sender: FDA-Public Use
  Company Number: US-VERTEX PHARMACEUTICAL INC.-2012-023725

PATIENT
  Age: 23 Year
  Sex: Female

DRUGS (1)
  1. VX-770 [Suspect]
     Indication: CYSTIC FIBROSIS
     Dosage: 150 MG, BID
     Route: 048
     Dates: start: 20120405

REACTIONS (3)
  - Exposure during pregnancy [Not Recovered/Not Resolved]
  - Weight gain poor [Recovered/Resolved]
  - Vomiting in pregnancy [Unknown]
